FAERS Safety Report 7546303-3 (Version None)
Quarter: 2011Q2

REPORT INFORMATION
  Report Type: 
  Country: None (occurrence: None)
  Receive Date: 20110614
  Receipt Date: 20040322
  Transmission Date: 20111010
  Serious: Yes (Hospitalization)
  Sender: FDA-Public Use
  Company Number: PHFR2004IE00516

PATIENT
  Sex: Male

DRUGS (5)
  1. CLOZAPINE [Suspect]
     Indication: SCHIZOPHRENIA
     Dosage: UNK, UNK
     Route: 048
     Dates: start: 20020214, end: 20040108
  2. LITHIUM [Concomitant]
     Indication: SCHIZOPHRENIA
     Dosage: 400 MG, QD
     Route: 065
     Dates: end: 20040108
  3. CLONAZEPAM [Concomitant]
     Route: 065
  4. PRIADEL [Concomitant]
     Dosage: 400 MG, BID
     Route: 048
  5. ATENOLOL [Concomitant]
     Dosage: 50 MG, UNK
     Route: 048

REACTIONS (8)
  - ASTHENIA [None]
  - OROPHARYNGEAL PAIN [None]
  - PYREXIA [None]
  - PALLOR [None]
  - RESPIRATORY TRACT INFECTION [None]
  - DIARRHOEA [None]
  - STAPHYLOCOCCAL SEPSIS [None]
  - FULL BLOOD COUNT DECREASED [None]
